FAERS Safety Report 24790296 (Version 2)
Quarter: 2025Q1

REPORT INFORMATION
  Report Type: Spontaneous
  Country: US (occurrence: US)
  Receive Date: 20241230
  Receipt Date: 20250120
  Transmission Date: 20250408
  Serious: No
  Sender: JOHNSON AND JOHNSON
  Company Number: US-JNJFOC-20241265653

PATIENT
  Age: 54 Year
  Sex: Female

DRUGS (4)
  1. UPTRAVI [Suspect]
     Active Substance: SELEXIPAG
     Indication: Pulmonary arterial hypertension
     Route: 048
     Dates: start: 202410
  2. TYVASO [Suspect]
     Active Substance: TREPROSTINIL
     Indication: Pulmonary arterial hypertension
     Route: 055
     Dates: start: 202406
  3. ADEMPAS [Concomitant]
     Active Substance: RIOCIGUAT
  4. OFEV [Concomitant]
     Active Substance: NINTEDANIB

REACTIONS (1)
  - Diarrhoea [Recovering/Resolving]

NARRATIVE: CASE EVENT DATE: 20240101
